FAERS Safety Report 12073285 (Version 1)
Quarter: 2016Q1

REPORT INFORMATION
  Report Type: Spontaneous
  Country: FR (occurrence: FR)
  Receive Date: 20160212
  Receipt Date: 20160212
  Transmission Date: 20160526
  Serious: Yes (Hospitalization)
  Sender: FDA-Public Use
  Company Number: FR-SA-2016SA022291

PATIENT
  Age: 28 Year
  Sex: Male

DRUGS (6)
  1. PREVISCAN [Suspect]
     Active Substance: FLUINDIONE
     Indication: EMBOLISM
     Dosage: STEENGTH: 20 MG?FORM: SCORED TABLET
     Route: 048
     Dates: start: 201503, end: 20160116
  2. NEFOPAM [Concomitant]
     Active Substance: NEFOPAM
  3. CRESTOR [Concomitant]
     Active Substance: ROSUVASTATIN CALCIUM
  4. PLAVIX [Suspect]
     Active Substance: CLOPIDOGREL BISULFATE
     Indication: EMBOLISM
     Route: 048
     Dates: start: 201503, end: 20160116
  5. CORTANCYL [Concomitant]
     Active Substance: PREDNISONE
  6. ISOPTINE [Concomitant]
     Active Substance: VERAPAMIL HYDROCHLORIDE

REACTIONS (2)
  - International normalised ratio increased [Recovered/Resolved]
  - Extradural haematoma [Recovering/Resolving]

NARRATIVE: CASE EVENT DATE: 20160115
